FAERS Safety Report 19967272 (Version 2)
Quarter: 2021Q4

REPORT INFORMATION
  Report Type: Spontaneous
  Country: US (occurrence: US)
  Receive Date: 20211019
  Receipt Date: 20211102
  Transmission Date: 20220304
  Serious: Yes (Other)
  Sender: FDA-Public Use
  Company Number: US-LUPIN PHARMACEUTICALS INC.-2021-19503

PATIENT
  Sex: Male

DRUGS (8)
  1. OXYCODONE AND ACETAMINOPHEN [Suspect]
     Active Substance: ACETAMINOPHEN\OXYCODONE HYDROCHLORIDE
     Indication: Procedural pain
     Dosage: 10/325 MCG, ORAL (1 PILL AFTER EVERY 6 HRS)
     Route: 048
  2. OXYCODONE AND ACETAMINOPHEN [Suspect]
     Active Substance: ACETAMINOPHEN\OXYCODONE HYDROCHLORIDE
     Indication: Procedural pain
     Dosage: 10/325 MCG, ORAL (1 PILL AFTER EVERY 6 HRS), OTHER MANUFACTURER
     Route: 048
  3. ATORVASTATIN [Concomitant]
     Active Substance: ATORVASTATIN
     Indication: Product used for unknown indication
     Dosage: UNK
     Route: 065
  4. CITALOPRAM [Concomitant]
     Active Substance: CITALOPRAM HYDROBROMIDE
     Indication: Depression
     Dosage: UNK
     Route: 065
  5. LORAZEPAM [Concomitant]
     Active Substance: LORAZEPAM
     Indication: Product used for unknown indication
     Dosage: UNK, OCCASIONALLY
     Route: 065
  6. CHLORTHALIDONE [Concomitant]
     Active Substance: CHLORTHALIDONE
     Indication: Diabetes mellitus
     Dosage: UNK
     Route: 065
  7. EDARBI [Concomitant]
     Active Substance: AZILSARTAN KAMEDOXOMIL
     Indication: Blood pressure abnormal
     Dosage: UNK
     Route: 065
  8. DICLOFENAC [Concomitant]
     Active Substance: DICLOFENAC
     Indication: Product used for unknown indication
     Dosage: UNK, OCASSIONALLY
     Route: 065

REACTIONS (3)
  - Asthenia [Recovered/Resolved]
  - Suicidal ideation [Recovered/Resolved]
  - Thinking abnormal [Recovered/Resolved]
